FAERS Safety Report 24414934 (Version 4)
Quarter: 2025Q1

REPORT INFORMATION
  Report Type: Report from Study
  Country: US (occurrence: US)
  Receive Date: 20241009
  Receipt Date: 20250304
  Transmission Date: 20250409
  Serious: Yes (Death)
  Sender: ABBVIE
  Company Number: US-ABBVIE-5955108

PATIENT
  Age: 69 Year
  Sex: Female
  Weight: 74 kg

DRUGS (1)
  1. HUMIRA [Suspect]
     Active Substance: ADALIMUMAB
     Indication: Product used for unknown indication
     Route: 058
     Dates: start: 20230906

REACTIONS (4)
  - Chronic obstructive pulmonary disease [Fatal]
  - Carbon dioxide increased [Fatal]
  - Atrial fibrillation [Fatal]
  - Drug ineffective [Unknown]
